FAERS Safety Report 11157379 (Version 1)
Quarter: 2015Q2

REPORT INFORMATION
  Report Type: Spontaneous
  Country: BR (occurrence: BR)
  Receive Date: 20150603
  Receipt Date: 20150603
  Transmission Date: 20150821
  Serious: Yes (Death, Other)
  Sender: FDA-Public Use
  Company Number: BR-JNJFOC-20150521235

PATIENT
  Sex: Female

DRUGS (2)
  1. IMOSEC [Suspect]
     Active Substance: LOPERAMIDE
     Indication: PRODUCT USED FOR UNKNOWN INDICATION
     Route: 065
  2. IMOSEC [Suspect]
     Active Substance: LOPERAMIDE
     Route: 065

REACTIONS (2)
  - Pneumonia [Fatal]
  - Drug ineffective [Not Recovered/Not Resolved]
